FAERS Safety Report 17888011 (Version 1)
Quarter: 2020Q2

REPORT INFORMATION
  Report Type: Spontaneous
  Country: US (occurrence: US)
  Receive Date: 20200612
  Receipt Date: 20200612
  Transmission Date: 20200714
  Serious: Yes (Hospitalization)
  Sender: FDA-Public Use
  Company Number: US-SPECGX-T202001059

PATIENT
  Age: 55 Year
  Sex: Male

DRUGS (2)
  1. OXYCODONE [Suspect]
     Active Substance: OXYCODONE
     Indication: PRODUCT USED FOR UNKNOWN INDICATION
     Dosage: 24 TABLETS OF 30 MG OVER THAT 48-HOUR PERIOD
     Route: 048
  2. OXYGEN. [Concomitant]
     Active Substance: OXYGEN
     Indication: CHRONIC OBSTRUCTIVE PULMONARY DISEASE
     Dosage: UNK
     Route: 065

REACTIONS (6)
  - Unresponsive to stimuli [Unknown]
  - Accidental overdose [Unknown]
  - Multiple organ dysfunction syndrome [Unknown]
  - Acute respiratory failure [Unknown]
  - Myelitis transverse [Unknown]
  - Shock [Unknown]
